FAERS Safety Report 13497005 (Version 1)
Quarter: 2017Q2

REPORT INFORMATION
  Report Type: Spontaneous
  Country: FR (occurrence: FR)
  Receive Date: 20170428
  Receipt Date: 20170428
  Transmission Date: 20170830
  Serious: Yes (Hospitalization, Other)
  Sender: FDA-Public Use
  Company Number: FR-PFIZER INC-2017188604

PATIENT
  Age: 89 Year
  Sex: Male
  Weight: 59 kg

DRUGS (5)
  1. IMETH [Suspect]
     Active Substance: METHOTREXATE SODIUM
     Dosage: 5 MG, WEEKLY (EVERY FRIDAY)
     Route: 048
     Dates: start: 20160818, end: 20170410
  2. KARDEGIC [Concomitant]
     Active Substance: ASPIRIN LYSINE
     Dosage: 75 MG, DAILY
     Route: 048
     Dates: end: 20170411
  3. AVODART [Concomitant]
     Active Substance: DUTASTERIDE
     Dosage: 0.5 MG, DAILY
     Route: 048
     Dates: end: 20170411
  4. ACETYLSALICYLIC ACID [Suspect]
     Active Substance: ASPIRIN
     Dosage: 75 MG, DAILY
     Route: 048
  5. ACIDE FOLIQUE ARROW [Concomitant]
     Dosage: 5 MG, 3X/DAY
     Route: 048
     Dates: start: 20150201, end: 20170411

REACTIONS (5)
  - Stomatitis [Not Recovered/Not Resolved]
  - Decreased appetite [Unknown]
  - Dehydration [Recovering/Resolving]
  - Dysphagia [Unknown]
  - Dry mouth [Not Recovered/Not Resolved]

NARRATIVE: CASE EVENT DATE: 20170410
